FAERS Safety Report 9470681 (Version 1)
Quarter: 2013Q3

REPORT INFORMATION
  Report Type: Spontaneous
  Country: US (occurrence: None)
  Receive Date: 20130820
  Receipt Date: 20130820
  Transmission Date: 20140515
  Serious: Yes (Disabling, Other)
  Sender: FDA-Public Use
  Company Number: None

PATIENT
  Age: 19 Year
  Sex: Male
  Weight: 97.07 kg

DRUGS (9)
  1. RISPERDAL [Suspect]
     Indication: MOOD SWINGS
     Route: 048
     Dates: start: 20090216, end: 20090403
  2. RISPERDAL [Suspect]
     Indication: INSOMNIA
     Route: 048
     Dates: start: 20090216, end: 20090403
  3. RISPERDAL [Suspect]
     Indication: ABNORMAL BEHAVIOUR
     Route: 048
     Dates: start: 20090216, end: 20090403
  4. RISPERDAL [Suspect]
     Indication: AGGRESSION
     Route: 048
     Dates: start: 20090216, end: 20090403
  5. COLACE [Concomitant]
  6. ZANTAC [Concomitant]
  7. PRILOSEC [Concomitant]
  8. QVAR [Concomitant]
  9. VENTOLIN INHALER [Concomitant]

REACTIONS (8)
  - Back pain [None]
  - Blood urine present [None]
  - Chromaturia [None]
  - Semen discolouration [None]
  - Abdominal pain upper [None]
  - Groin pain [None]
  - Penile pain [None]
  - Testicular pain [None]
